FAERS Safety Report 19259410 (Version 2)
Quarter: 2021Q2

REPORT INFORMATION
  Report Type: Spontaneous
  Country: FR (occurrence: FR)
  Receive Date: 20210514
  Receipt Date: 20210603
  Transmission Date: 20210717
  Serious: Yes (Death)
  Sender: FDA-Public Use
  Company Number: FR-BAUSCH-BL-2021-015965

PATIENT
  Age: 87 Year
  Sex: Female

DRUGS (7)
  1. PENTOXIFYLLINE. [Suspect]
     Active Substance: PENTOXIFYLLINE
     Indication: PRODUCT USED FOR UNKNOWN INDICATION
     Route: 065
  2. DIAMOX SEQUELS [Suspect]
     Active Substance: ACETAZOLAMIDE
     Indication: GLAUCOMA
     Dosage: SEVERAL YEARS; BREAKABLE TABLET; THE PATIENT HAD BEEN TREATED FOR SEVERAL YEARS WITH DIAMOX.
     Route: 048
  3. ALDACTAZINE [Suspect]
     Active Substance: ALTHIAZIDE\SPIRONOLACTONE
     Indication: HYPERTENSION
     Route: 065
  4. CALTRATE [Suspect]
     Active Substance: CALCIUM CARBONATE
     Indication: PRODUCT USED FOR UNKNOWN INDICATION
     Route: 065
  5. HYPERIUM [Suspect]
     Active Substance: RILMENIDINE PHOSPHATE
     Indication: HYPERTENSION
     Route: 065
  6. DIFFU K [Suspect]
     Active Substance: POTASSIUM CHLORIDE
     Indication: PRODUCT USED FOR UNKNOWN INDICATION
     Route: 065
  7. ACTONEL [Suspect]
     Active Substance: RISEDRONATE SODIUM
     Indication: OSTEOPOROSIS
     Route: 065

REACTIONS (10)
  - Metabolic acidosis [Fatal]
  - Tachycardia [Fatal]
  - Neurological decompensation [Fatal]
  - Lactic acidosis [Fatal]
  - Hypokalaemia [Fatal]
  - Blood bicarbonate decreased [Fatal]
  - Acute respiratory failure [Fatal]
  - Multiple organ dysfunction syndrome [Fatal]
  - General physical health deterioration [Fatal]
  - Cardiac failure [Fatal]

NARRATIVE: CASE EVENT DATE: 2016
